FAERS Safety Report 21190059 (Version 1)
Quarter: 2022Q3

REPORT INFORMATION
  Report Type: Spontaneous
  Country: US (occurrence: US)
  Receive Date: 20220809
  Receipt Date: 20220809
  Transmission Date: 20221026
  Serious: Yes (Other)
  Sender: FDA-Public Use
  Company Number: US-GLAXOSMITHKLINE-USCH2022GSK027772

PATIENT

DRUGS (1)
  1. ORLISTAT [Suspect]
     Active Substance: ORLISTAT
     Indication: Weight decreased
     Dosage: UNK

REACTIONS (8)
  - Nephrocalcinosis [Unknown]
  - Nephrolithiasis [Unknown]
  - Haematuria [Recovered/Resolved]
  - Hyperoxaluria [Recovered/Resolved]
  - Hypocitraturia [Recovering/Resolving]
  - Hyperuricosuria [Recovering/Resolving]
  - Fat intolerance [Unknown]
  - Crystalluria [Unknown]
